FAERS Safety Report 7702334 (Version 7)
Quarter: 2014Q2

REPORT INFORMATION
  Report Type: Spontaneous
  Country: US (occurrence: US)
  Receive Date: 20101209
  Receipt Date: 20140515
  Transmission Date: 20141212
  Serious: Yes (Other)
  Sender: FDA-Public Use
  Company Number: US-AMGEN-USASP2010007966

PATIENT
  Age: 67 Year
  Sex: Male

DRUGS (2)
  1. NPLATE [Suspect]
     Indication: IMMUNE THROMBOCYTOPENIC PURPURA
     Dosage: UNK
     Route: 065
     Dates: start: 2010
  2. LIVER THERAPY [Concomitant]
     Indication: PLATELET COUNT
     Dosage: 30 DF, QD

REACTIONS (11)
  - Erectile dysfunction [Not Recovered/Not Resolved]
  - Cardiac murmur [Unknown]
  - Platelet count decreased [Unknown]
  - Atrial fibrillation [Unknown]
  - Prostatomegaly [Unknown]
  - Drug ineffective [Unknown]
  - Gingival disorder [Unknown]
  - Tooth disorder [Not Recovered/Not Resolved]
  - Tooth infection [Unknown]
  - Platelet count increased [Recovered/Resolved]
  - Tooth extraction [Unknown]
